FAERS Safety Report 7094691-7 (Version None)
Quarter: 2010Q4

REPORT INFORMATION
  Report Type: 
  Country: None (occurrence: None)
  Receive Date: 20101110
  Receipt Date: 20090227
  Transmission Date: 20110411
  Serious: No
  Sender: FDA-Public Use
  Company Number: US-KINGPHARMUSA00001-K200900207

PATIENT
  Age: 46 Year
  Sex: Female
  Weight: 48.98 kg

DRUGS (3)
  1. LEVOXYL [Suspect]
     Indication: THYROIDECTOMY
     Dosage: 50 MCG, QD
     Route: 048
     Dates: start: 20090101
  2. CALCIUM CARBONATE [Suspect]
     Dosage: UNK
  3. FERROUS SULFATE TAB [Suspect]
     Dosage: UNK
     Dates: end: 20090201

REACTIONS (1)
  - FATIGUE [None]
